FAERS Safety Report 5251992-2 (Version None)
Quarter: 2007Q1

REPORT INFORMATION
  Report Type: 
  Country: None (occurrence: None)
  Receive Date: 20070226
  Receipt Date: 20070212
  Transmission Date: 20070707
  Serious: Yes (Death, Life-Threatening, Hospitalization, Other)
  Sender: FDA-Public Use
  Company Number: 1999-08-0375

PATIENT
  Age: 20 Year
  Sex: Male
  Weight: 69 kg

DRUGS (9)
  1. POSACONAZOLE [Suspect]
     Indication: PROPHYLAXIS
     Dosage: 200 MG; TID; PO
     Route: 048
     Dates: start: 19990504, end: 19990812
  2. FOLIC ACID [Concomitant]
  3. PENICILLIN V POTASSIUM [Concomitant]
  4. PREDNISONE TAB [Concomitant]
  5. BENADRYL [Concomitant]
  6. HYDROCORTISONE (S-P) [Concomitant]
  7. URSO [Concomitant]
  8. IMURAN [Concomitant]
  9. AMPHOTERICIN B [Concomitant]

REACTIONS (7)
  - GASTROINTESTINAL HAEMORRHAGE [None]
  - GENERAL PHYSICAL HEALTH DETERIORATION [None]
  - HAEMOGLOBIN DECREASED [None]
  - HAEMOLYTIC URAEMIC SYNDROME [None]
  - INTRA-ABDOMINAL HAEMORRHAGE [None]
  - MULTI-ORGAN FAILURE [None]
  - THROMBOTIC THROMBOCYTOPENIC PURPURA [None]
